FAERS Safety Report 8356216 (Version 2)
Quarter: 2014Q1

REPORT INFORMATION
  Report Type: Report from Study
  Country: GB (occurrence: GB)
  Receive Date: 20120126
  Receipt Date: 20140227
  Transmission Date: 20141002
  Serious: Yes (Death, Hospitalization, Other)
  Sender: FDA-Public Use
  Company Number: GB-ROCHE-1033156

PATIENT
  Sex: Female
  Weight: 48 kg

DRUGS (1)
  1. RITUXIMAB [Suspect]
     Indication: RHEUMATOID ARTHRITIS
     Route: 065
     Dates: start: 20070130

REACTIONS (4)
  - Arrhythmia [Fatal]
  - Cardiac murmur [Unknown]
  - Myocardial fibrosis [Unknown]
  - Atrial septal defect [Unknown]
